FAERS Safety Report 19229047 (Version 1)
Quarter: 2021Q2

REPORT INFORMATION
  Report Type: Spontaneous
  Country: US (occurrence: US)
  Receive Date: 20210506
  Receipt Date: 20210506
  Transmission Date: 20210717
  Serious: Yes (Hospitalization)
  Sender: FDA-Public Use
  Company Number: None

PATIENT
  Age: 73 Year
  Sex: Female
  Weight: 64.2 kg

DRUGS (18)
  1. LEVOTHYROXINE. [Concomitant]
     Active Substance: LEVOTHYROXINE
  2. SODIUM CHLORIDE. [Concomitant]
     Active Substance: SODIUM CHLORIDE
  3. HYDROCODONE/ACETAMINOPHEN [Concomitant]
     Active Substance: ACETAMINOPHEN\HYDROCODONE
  4. TIZANIDINE. [Concomitant]
     Active Substance: TIZANIDINE
  5. HYDROMORPHONE [Concomitant]
     Active Substance: HYDROMORPHONE
  6. MAGNESIUM OXIDE. [Concomitant]
     Active Substance: MAGNESIUM OXIDE
  7. ALBUTEROL. [Concomitant]
     Active Substance: ALBUTEROL
  8. ASCORBIC ACID. [Concomitant]
     Active Substance: ASCORBIC ACID
  9. LIDOCAINE?PRILOCAINE [Concomitant]
     Active Substance: LIDOCAINE\PRILOCAINE
  10. METOPROLOL TARTRATE. [Concomitant]
     Active Substance: METOPROLOL TARTRATE
  11. NIFEDIPINE. [Concomitant]
     Active Substance: NIFEDIPINE
  12. PRAVASTATIN. [Concomitant]
     Active Substance: PRAVASTATIN
  13. MULTIVITAMIN [Concomitant]
     Active Substance: VITAMINS
  14. CLONIDINE. [Concomitant]
     Active Substance: CLONIDINE
  15. ASPIRIN. [Concomitant]
     Active Substance: ASPIRIN
  16. FENTANYL. [Concomitant]
     Active Substance: FENTANYL
  17. HYCAMTIN [Suspect]
     Active Substance: TOPOTECAN HYDROCHLORIDE
     Indication: SMALL CELL LUNG CANCER METASTATIC
     Route: 048
     Dates: start: 20210224
  18. VITAMIN D3 [Concomitant]
     Active Substance: CHOLECALCIFEROL

REACTIONS (1)
  - Hospice care [None]
